FAERS Safety Report 9344081 (Version 1)
Quarter: 2013Q2

REPORT INFORMATION
  Report Type: Spontaneous
  Country: US (occurrence: US)
  Receive Date: 20130612
  Receipt Date: 20130612
  Transmission Date: 20140414
  Serious: Yes (Hospitalization, Other)
  Sender: FDA-Public Use
  Company Number: US-PFIZER INC-2013175974

PATIENT
  Age: 65 Year
  Sex: Female
  Weight: 81.63 kg

DRUGS (6)
  1. LYRICA [Suspect]
     Indication: FIBROMYALGIA
     Dosage: 100 MG, 3X/DAY
     Route: 048
     Dates: start: 2005, end: 20130530
  2. LYRICA [Suspect]
     Dosage: UNK
     Route: 048
     Dates: start: 20130607
  3. CALAN - SLOW RELEASE [Concomitant]
     Indication: CARDIAC DISORDER
     Dosage: 180 MG, 1X/DAY
  4. WARFARIN [Concomitant]
     Indication: CARDIAC DISORDER
     Dosage: 3 MG, 1X/DAY
  5. ASPIRIN [Concomitant]
     Indication: CARDIAC DISORDER
     Dosage: 81 MG, UNK
  6. NEURONTIN [Concomitant]
     Indication: POST HERPETIC NEURALGIA
     Dosage: 800 MG, 2X/DAY

REACTIONS (7)
  - Drug withdrawal syndrome [Unknown]
  - Hyperhidrosis [Unknown]
  - Vomiting [Unknown]
  - Tremor [Unknown]
  - Feeling abnormal [Unknown]
  - Weight decreased [Unknown]
  - Blood glucose increased [Unknown]
